FAERS Safety Report 8564658-8 (Version None)
Quarter: 2012Q3

REPORT INFORMATION
  Report Type: 
  Country: None (occurrence: None)
  Receive Date: 20120803
  Receipt Date: 19821025
  Transmission Date: 20120928
  Serious: No
  Sender: FDA-Public Use
  Company Number: US-009507513-82110001

PATIENT

DRUGS (1)
  1. CLINORIL [Suspect]
     Indication: ARTHRITIS
     Dosage: 300 MG, BID
     Route: 048
     Dates: start: 19801101

REACTIONS (1)
  - HIRSUTISM [None]
